FAERS Safety Report 23064670 (Version 2)
Quarter: 2023Q4

REPORT INFORMATION
  Report Type: Spontaneous
  Country: US (occurrence: US)
  Receive Date: 20231013
  Receipt Date: 20231013
  Transmission Date: 20240109
  Serious: No
  Sender: FDA-Public Use
  Company Number: US-MYLANLABS-2023M1088018

PATIENT
  Age: 84 Year
  Sex: Female
  Weight: 53.5 kg

DRUGS (1)
  1. WIXELA INHUB [Suspect]
     Active Substance: FLUTICASONE PROPIONATE\SALMETEROL XINAFOATE
     Indication: Respiration abnormal
     Dosage: 250/50 MICROGRAM, BID, 15-AUG-2023
     Route: 055

REACTIONS (2)
  - Therapeutic product effect incomplete [Unknown]
  - Device malfunction [Recovered/Resolved]

NARRATIVE: CASE EVENT DATE: 20230814
